FAERS Safety Report 7613165-5 (Version None)
Quarter: 2011Q3

REPORT INFORMATION
  Report Type: 
  Country: None (occurrence: None)
  Receive Date: 20110708
  Receipt Date: 20110624
  Transmission Date: 20111222
  Serious: Yes (Death, Hospitalization)
  Sender: FDA-Public Use
  Company Number: AUR-APL-2011-03696

PATIENT
  Age: 69 Year
  Sex: Female

DRUGS (8)
  1. SERTRALINE HYDROCHLORIDE [Suspect]
     Indication: DEPRESSION
     Dosage: (100 MG)
  2. VENLAFAXINE [Suspect]
     Indication: DEPRESSION
     Dosage: (225 MG)
  3. QUETIAPINE FUMARATE [Suspect]
     Indication: PSYCHOTIC DISORDER
     Dosage: (100 MG)
  4. OLANZAPINE [Suspect]
     Indication: PSYCHOTIC DISORDER
     Dosage: (5 MG)
  5. PAROXETINE HCL [Suspect]
     Indication: DEPRESSION
     Dosage: (20 MG)
  6. REBOXETINE (REBOXETINE) [Suspect]
     Indication: DEPRESSION
     Dosage: (4 MG)
  7. ESCITALOPRAM [Suspect]
     Indication: DEPRESSION
     Dosage: (20 MG)
  8. MIRTAZAPINE [Suspect]
     Indication: DEPRESSION
     Dosage: (30 MG)

REACTIONS (6)
  - INTERNATIONAL NORMALISED RATIO ABNORMAL [None]
  - DEPRESSION [None]
  - ANTIPHOSPHOLIPID ANTIBODIES POSITIVE [None]
  - CONDITION AGGRAVATED [None]
  - PULMONARY EMBOLISM [None]
  - DEEP VEIN THROMBOSIS [None]
